FAERS Safety Report 6107794-8 (Version None)
Quarter: 2009Q1

REPORT INFORMATION
  Report Type: 
  Country: None (occurrence: None)
  Receive Date: 20090309
  Receipt Date: 20090305
  Transmission Date: 20090719
  Serious: Yes (Hospitalization)
  Sender: FDA-Public Use
  Company Number: B0562129A

PATIENT
  Age: 50 Year
  Sex: Male
  Weight: 74.4 kg

DRUGS (21)
  1. EPZICOM [Suspect]
     Indication: HIV INFECTION
     Dates: start: 20070629
  2. RITONAVIR [Suspect]
     Indication: HIV INFECTION
     Dosage: 100MG PER DAY
     Dates: start: 20070629
  3. ATAZANAVIR SULFATE [Suspect]
     Indication: HIV INFECTION
     Dosage: 300MG PER DAY
     Dates: start: 20070629
  4. VERSED [Concomitant]
     Dosage: 1MG AS REQUIRED
     Route: 042
     Dates: start: 20090224, end: 20090224
  5. FENTANYL [Concomitant]
     Dosage: 50MCG AS REQUIRED
     Route: 042
     Dates: start: 20090224, end: 20090224
  6. HEPARIN [Concomitant]
     Indication: THROMBOSIS PROPHYLAXIS
     Dosage: 1000UNIT AS REQUIRED
     Route: 042
     Dates: start: 20090224, end: 20090224
  7. NITROGLYCERIN [Concomitant]
     Dosage: 300MCG SINGLE DOSE
     Route: 013
     Dates: start: 20090224, end: 20090224
  8. LANTUS [Concomitant]
  9. HUMALOG [Concomitant]
  10. LIPITOR [Concomitant]
  11. TRICOR [Concomitant]
  12. LEVOTHYROXINE SODIUM [Concomitant]
  13. PROZAC [Concomitant]
  14. LISINOPRIL [Concomitant]
  15. HYDROCHLOROTHIAZIDE [Concomitant]
  16. MARINOL [Concomitant]
  17. ASPIRIN [Concomitant]
  18. PLAVIX [Concomitant]
  19. AMBIEN [Concomitant]
  20. CLARITIN [Concomitant]
  21. GEODON [Concomitant]

REACTIONS (2)
  - INTERMITTENT CLAUDICATION [None]
  - PERIPHERAL VASCULAR DISORDER [None]
